FAERS Safety Report 22930517 (Version 2)
Quarter: 2023Q4

REPORT INFORMATION
  Report Type: Report from Study
  Country: GB (occurrence: GB)
  Receive Date: 20230911
  Receipt Date: 20231019
  Transmission Date: 20240110
  Serious: Yes (Hospitalization, Other)
  Sender: FDA-Public Use
  Company Number: GB-ABBVIE-4726278

PATIENT
  Age: 72 Year
  Sex: Female

DRUGS (32)
  1. PRAMIPEXOLE [Suspect]
     Active Substance: PRAMIPEXOLE
     Indication: Product used for unknown indication
     Dosage: 1.75 MILLIGRAM QD(1.57MG (BASE) X2)
     Route: 065
  2. PRAMIPEXOLE [Suspect]
     Active Substance: PRAMIPEXOLE
     Dosage: 3.9 MILLIGRAM
     Route: 065
  3. PRAMIPEXOLE [Suspect]
     Active Substance: PRAMIPEXOLE
     Dosage: UNK,(2.88 MG)(START DATE: 26-AUG-2023)
     Route: 065
     Dates: end: 2023
  4. PRAMIPEXOLE [Suspect]
     Active Substance: PRAMIPEXOLE
     Dosage: 2.1MG X1 0.26 X3; (START DATE: 2023)
     Route: 065
     Dates: end: 2023
  5. PRAMIPEXOLE [Suspect]
     Active Substance: PRAMIPEXOLE
     Dosage: FREQUENCY TEXT: 1600; QD (START DATE: 2023)
     Route: 065
  6. CARBIDOPA\LEVODOPA [Suspect]
     Active Substance: CARBIDOPA\LEVODOPA
     Indication: Parkinson^s disease
     Dosage: DUODOPA 20MG/5MG; MD:10.0 MLS, CR:2.1 ML/HR, ED:2.5ML
     Route: 065
  7. CARBIDOPA\LEVODOPA [Suspect]
     Active Substance: CARBIDOPA\LEVODOPA
     Dosage: MD: 11.0 MLS; CR: 4.0 ML/HR AND ED: 4.0 ML(START DATE: 2023)
     Route: 065
     Dates: end: 2023
  8. CARBIDOPA\LEVODOPA [Suspect]
     Active Substance: CARBIDOPA\LEVODOPA
     Dosage: MD:10.0 MLS, CR:2.3 ML/HR, ED:3.0 ML(START DATE: 2023)
     Route: 065
     Dates: end: 2023
  9. CARBIDOPA\LEVODOPA [Suspect]
     Active Substance: CARBIDOPA\LEVODOPA
     Dosage: MD 11.5  CR 4.9MLS  ED 4.5 MLS (USING FOUR A DAY)(START DATE: 2023)
     Route: 065
  10. CARBIDOPA\LEVODOPA [Suspect]
     Active Substance: CARBIDOPA\LEVODOPA
     Dosage: MD:10.0 MLS, CR:2.3 ML/HR, ED:3.0 ML, DOSE INCREASED(START DATE: 2023)
     Route: 065
     Dates: end: 2023
  11. CARBIDOPA\LEVODOPA [Suspect]
     Active Substance: CARBIDOPA\LEVODOPA
     Dosage: MD: 11.5, CR: 4.7, ED: 4.5 (START DATE: 2023)
     Route: 065
     Dates: end: 2023
  12. CARBIDOPA\LEVODOPA [Suspect]
     Active Substance: CARBIDOPA\LEVODOPA
     Dosage: MD: 11.0 MLS; CR: 4.0 ML/HR AND ED: 4.0 ML (START DATE: 2023)
     Route: 065
     Dates: end: 2023
  13. CARBIDOPA\LEVODOPA [Suspect]
     Active Substance: CARBIDOPA\LEVODOPA
     Dosage: MD: 10.5, ED: 3.5, CR: 3.2, 20MGS/5MGS (START DATE: 2023)
     Route: 065
     Dates: end: 2023
  14. CARBIDOPA\LEVODOPA [Suspect]
     Active Substance: CARBIDOPA\LEVODOPA
     Dosage: MD:11.5MLS, CR: 4.5 ML/HR, ED:4.5ML,20MG/5MG (START DATE: 2023)
     Route: 065
     Dates: end: 2023
  15. CARBIDOPA\LEVODOPA [Suspect]
     Active Substance: CARBIDOPA\LEVODOPA
     Dosage: 20MG/5MG; MD:10.0 MLS, CR:2.1 ML/HR, ED:2.5ML
     Route: 065
     Dates: end: 2023
  16. APOMORPHINE [Concomitant]
     Active Substance: APOMORPHINE
     Indication: Product used for unknown indication
     Dosage: UNK
     Route: 065
     Dates: end: 20230421
  17. APOMORPHINE [Concomitant]
     Active Substance: APOMORPHINE
     Dosage: UNK,(DOSE INCREASSED)
     Route: 065
  18. GABAPENTIN [Concomitant]
     Active Substance: GABAPENTIN
     Indication: Product used for unknown indication
     Dosage: 200 MILLIGRAM
     Route: 065
  19. LANSOPRAZOLE [Concomitant]
     Active Substance: LANSOPRAZOLE
     Indication: Product used for unknown indication
     Dosage: UNK
     Route: 065
  20. MIRABEGRON [Concomitant]
     Active Substance: MIRABEGRON
     Indication: Product used for unknown indication
     Dosage: 100 MILLIGRAM, QD
     Route: 065
  21. RASAGILINE [Concomitant]
     Active Substance: RASAGILINE
     Indication: Product used for unknown indication
     Dosage: 1 MILLIGRAM, QD
     Route: 065
  22. SULFAMETHOXAZOLE\TRIMETHOPRIM [Concomitant]
     Active Substance: SULFAMETHOXAZOLE\TRIMETHOPRIM
     Indication: Prophylaxis
     Dosage: UNK
     Route: 065
  23. SULFAMETHOXAZOLE\TRIMETHOPRIM [Concomitant]
     Active Substance: SULFAMETHOXAZOLE\TRIMETHOPRIM
     Dosage: 12.5/50
     Route: 065
  24. BENSERAZIDE HYDROCHLORIDE\LEVODOPA [Concomitant]
     Active Substance: BENSERAZIDE HYDROCHLORIDE\LEVODOPA
     Indication: Product used for unknown indication
     Dosage: 62.5 MILLIGRAM, BID
     Route: 065
  25. BENSERAZIDE HYDROCHLORIDE\LEVODOPA [Concomitant]
     Active Substance: BENSERAZIDE HYDROCHLORIDE\LEVODOPA
     Dosage: UNK,(62.5MG X 21 IN MORNING AS REQUIRED MAX 3 X DAILY)
     Route: 065
  26. SINEMET [Concomitant]
     Active Substance: CARBIDOPA\LEVODOPA
     Indication: Product used for unknown indication
     Dosage: CR, 25/100MG; QD
     Route: 065
  27. SINEMET [Concomitant]
     Active Substance: CARBIDOPA\LEVODOPA
     Dosage: 25/100MG
     Route: 065
  28. SINEMET [Concomitant]
     Active Substance: CARBIDOPA\LEVODOPA
     Indication: Product used for unknown indication
     Dosage: 125 MILLIGRAM, QD IN THE MORNING
     Route: 065
  29. SINEMET CR [Concomitant]
     Active Substance: CARBIDOPA\LEVODOPA
     Indication: Product used for unknown indication
     Dosage: 25/100 MG BID
     Route: 065
  30. SINEMET CR [Concomitant]
     Active Substance: CARBIDOPA\LEVODOPA
     Dosage: 2 DOSAGE FORM, QD (HALF, 12.5/50MGTWO TABLETS AT NIGHT;)
     Route: 065
  31. SINEMET CR [Concomitant]
     Active Substance: CARBIDOPA\LEVODOPA
     Dosage: HALF, 12.5/50MG
     Route: 065
  32. BENSERAZIDE HYDROCHLORIDE\LEVODOPA [Concomitant]
     Active Substance: BENSERAZIDE HYDROCHLORIDE\LEVODOPA
     Indication: Product used for unknown indication
     Dosage: 12.5/50, QD
     Route: 065

REACTIONS (20)
  - Hospitalisation [Unknown]
  - Parkinson^s disease [Unknown]
  - Muscle rigidity [Unknown]
  - Gait disturbance [Not Recovered/Not Resolved]
  - Freezing phenomenon [Unknown]
  - Fall [Recovered/Resolved]
  - Constipation [Recovered/Resolved]
  - Stoma site hypergranulation [Not Recovered/Not Resolved]
  - Therapeutic product effect incomplete [Unknown]
  - Device issue [Unknown]
  - Anxiety [Not Recovered/Not Resolved]
  - Dyskinesia [Recovered/Resolved]
  - Weight decreased [Not Recovered/Not Resolved]
  - Blood pressure decreased [Unknown]
  - Balance disorder [Unknown]
  - Diarrhoea [Unknown]
  - Tremor [Unknown]
  - Mobility decreased [Unknown]
  - Joint range of motion decreased [Unknown]
  - Fear of falling [Unknown]

NARRATIVE: CASE EVENT DATE: 20230101
